FAERS Safety Report 11494551 (Version 1)
Quarter: 2015Q3

REPORT INFORMATION
  Report Type: Spontaneous
  Country: US (occurrence: US)
  Receive Date: 20150911
  Receipt Date: 20150911
  Transmission Date: 20151125
  Serious: No
  Sender: FDA-Public Use
  Company Number: US-ROCHE-1029373

PATIENT
  Sex: Male

DRUGS (2)
  1. RIBAVIRIN. [Suspect]
     Active Substance: RIBAVIRIN
     Indication: HEPATITIS C
     Route: 065
  2. PEGASYS [Suspect]
     Active Substance: PEGINTERFERON ALFA-2A
     Indication: HEPATITIS C
     Route: 065

REACTIONS (9)
  - Alopecia [Unknown]
  - Palpitations [Unknown]
  - Muscle atrophy [Unknown]
  - Weight decreased [Unknown]
  - Memory impairment [Unknown]
  - Mental impairment [Unknown]
  - Bronchitis [Unknown]
  - Pruritus [Unknown]
  - Asthenia [Unknown]
